FAERS Safety Report 5400766-8 (Version None)
Quarter: 2007Q3

REPORT INFORMATION
  Report Type: 
  Country: None (occurrence: None)
  Receive Date: 20070726
  Receipt Date: 20070713
  Transmission Date: 20080115
  Serious: Yes (Life-Threatening)
  Sender: FDA-Public Use
  Company Number: 2007US001615

PATIENT
  Sex: Male

DRUGS (2)
  1. ADENOSCAN [Suspect]
     Indication: SCAN MYOCARDIAL PERFUSION
  2. AGGRENOX [Concomitant]

REACTIONS (2)
  - CIRCULATORY COLLAPSE [None]
  - PROCEDURAL COMPLICATION [None]
